FAERS Safety Report 13591017 (Version 2)
Quarter: 2017Q2

REPORT INFORMATION
  Report Type: Spontaneous
  Country: DE (occurrence: DE)
  Receive Date: 20170530
  Receipt Date: 20170622
  Transmission Date: 20170830
  Serious: Yes (Hospitalization, Other)
  Sender: FDA-Public Use
  Company Number: DE-PFIZER INC-2017228707

PATIENT
  Age: 71 Year
  Sex: Female

DRUGS (12)
  1. LYRICA [Suspect]
     Active Substance: PREGABALIN
     Indication: RESTLESS LEGS SYNDROME
  2. LYRICA [Suspect]
     Active Substance: PREGABALIN
     Indication: PAIN
  3. LYRICA [Suspect]
     Active Substance: PREGABALIN
     Indication: MYALGIA
  4. ASPIRIN. [Concomitant]
     Active Substance: ASPIRIN
     Dosage: 100, 1X/DAY IN THE MORNING
  5. LYRICA [Suspect]
     Active Substance: PREGABALIN
     Indication: BURNING SENSATION
  6. VOCADO [Concomitant]
     Active Substance: AMLODIPINE BESYLATE\OLMESARTAN MEDOXOMIL
     Dosage: 40/5/25, 1X/DAY
  7. PLETAL [Concomitant]
     Active Substance: CILOSTAZOL
     Dosage: 100, 2X/DAY
  8. IBUPROFEN. [Concomitant]
     Active Substance: IBUPROFEN
     Dosage: 400, AS NEEDED
  9. TILIDIN [Concomitant]
     Active Substance: NALOXONE HYDROCHLORIDE\TILIDINE HYDROCHLORIDE
     Dosage: 100/8, 3X/DAY
  10. PLASTULEN [Concomitant]
     Dosage: UNK UNK, 2X/DAY
  11. LYRICA [Suspect]
     Active Substance: PREGABALIN
     Indication: NEUROPATHY PERIPHERAL
     Dosage: 75 MG, 2X/DAY
     Dates: end: 20170514
  12. PANTOZOL [Concomitant]
     Active Substance: PANTOPRAZOLE SODIUM
     Dosage: 40, 1X/DAY IN THE MORNING

REACTIONS (3)
  - Asthenia [Unknown]
  - Cardiac disorder [Unknown]
  - Fall [Unknown]

NARRATIVE: CASE EVENT DATE: 20170511
